FAERS Safety Report 6564390-6 (Version None)
Quarter: 2010Q1

REPORT INFORMATION
  Report Type: 
  Country: None (occurrence: None)
  Receive Date: 20100201
  Receipt Date: 20100129
  Transmission Date: 20100710
  Serious: Yes (Death)
  Sender: FDA-Public Use
  Company Number: BR-B.I. PHARMACEUTICALS,INC./RIDGEFIELD-2010-BR-00105BR

PATIENT
  Sex: Male

DRUGS (2)
  1. SPIRIVA [Suspect]
     Indication: EMPHYSEMA
     Dosage: NR
     Route: 055
     Dates: end: 20090606
  2. MEDICATION NOT FURTHER SPECIFIED [Concomitant]
     Dosage: NR

REACTIONS (1)
  - PNEUMONIA [None]
